FAERS Safety Report 23436008 (Version 3)
Quarter: 2025Q1

REPORT INFORMATION
  Report Type: Spontaneous
  Country: US (occurrence: US)
  Receive Date: 20240124
  Receipt Date: 20250129
  Transmission Date: 20250409
  Serious: Yes (Hospitalization, Other)
  Sender: SANOFI AVENTIS
  Company Number: US-SA-2024SA015845

PATIENT
  Age: 65 Year
  Sex: Male
  Weight: 64.09 kg

DRUGS (17)
  1. REZUROCK [Suspect]
     Active Substance: BELUMOSUDIL
     Indication: Bone marrow transplant
     Dosage: 200 MG, QD
     Route: 048
     Dates: start: 202212
  2. REZUROCK [Suspect]
     Active Substance: BELUMOSUDIL
     Indication: Graft versus host disease
  3. PREGABALIN [Concomitant]
     Active Substance: PREGABALIN
  4. MAGNESIUM [Concomitant]
     Active Substance: MAGNESIUM
  5. LISINOPRIL [Concomitant]
     Active Substance: LISINOPRIL
  6. POSACONAZOLE [Concomitant]
     Active Substance: POSACONAZOLE
  7. URSODIOL [Concomitant]
     Active Substance: URSODIOL
  8. JARDIANCE [Concomitant]
     Active Substance: EMPAGLIFLOZIN
  9. PREDNISONE [Concomitant]
     Active Substance: PREDNISONE
  10. VALACYCLOVIR [Concomitant]
     Active Substance: VALACYCLOVIR HYDROCHLORIDE
  11. NOVOLOG [Concomitant]
     Active Substance: INSULIN ASPART
  12. PENICILLIN V [Concomitant]
     Active Substance: PENICILLIN V
  13. METFORMIN [Concomitant]
     Active Substance: METFORMIN HYDROCHLORIDE
  14. FAMOTIDINE [Concomitant]
     Active Substance: FAMOTIDINE
  15. ELIQUIS [Concomitant]
     Active Substance: APIXABAN
  16. JAKAFI [Concomitant]
     Active Substance: RUXOLITINIB
  17. DAPSONE [Concomitant]
     Active Substance: DAPSONE

REACTIONS (4)
  - Thrombosis [Unknown]
  - Dry eye [Recovering/Resolving]
  - Weight increased [Not Recovered/Not Resolved]
  - Product use in unapproved indication [Unknown]

NARRATIVE: CASE EVENT DATE: 20221201
